FAERS Safety Report 12088664 (Version 2)
Quarter: 2016Q1

REPORT INFORMATION
  Report Type: Report from Study
  Country: JP (occurrence: JP)
  Receive Date: 20160218
  Receipt Date: 20160315
  Transmission Date: 20160526
  Serious: Yes (Other)
  Sender: FDA-Public Use
  Company Number: JP-AMGEN-JPNCT2016019948

PATIENT
  Sex: Male

DRUGS (1)
  1. DARBEPOETIN ALFA [Suspect]
     Active Substance: DARBEPOETIN ALFA
     Indication: CHRONIC KIDNEY DISEASE
     Dosage: 60 MUG, QD
     Route: 058
     Dates: start: 20150304

REACTIONS (1)
  - Arteriovenous shunt operation [Recovering/Resolving]

NARRATIVE: CASE EVENT DATE: 20160105
